FAERS Safety Report 8232061 (Version 7)
Quarter: 2013Q4

REPORT INFORMATION
  Report Type: Report from Study
  Country: AU (occurrence: AU)
  Receive Date: 20111031
  Receipt Date: 20131031
  Transmission Date: 20140711
  Serious: Yes (Hospitalization, Other)
  Sender: FDA-Public Use
  Company Number: AU-009507513-2011SP048918

PATIENT
  Age: 46 Year
  Sex: Female

DRUGS (13)
  1. INTRONA [Suspect]
     Indication: MALIGNANT MELANOMA
     Dosage: 40 MILLION IU, UNKNOWN
     Route: 042
     Dates: start: 20110829
  2. INTRONA [Suspect]
     Dosage: 30 MILLION IU, UNKNOWN
     Route: 042
  3. INTRONA [Suspect]
     Dosage: 22.6 MILLION IU, TIW
     Route: 042
     Dates: start: 20111003
  4. INTRONA [Suspect]
     Dosage: UNK UNK, UNKNOWN
     Route: 065
     Dates: start: 20111016
  5. INTRONA [Suspect]
     Dosage: 22.6 MILLION IU, TIW
     Route: 065
     Dates: start: 20111006, end: 201112
  6. INTRONA [Suspect]
     Dosage: 22.6 MILLION IU, TIW
     Route: 065
     Dates: start: 20120116
  7. INTRONA [Suspect]
     Dosage: 22.5 MILLION IU, TIW
     Route: 065
     Dates: start: 20120507, end: 20120716
  8. MICARDIS [Concomitant]
     Indication: BLOOD PRESSURE
     Dosage: UNK UNK, UNKNOWN
     Route: 065
  9. BISMUTH SUBNITRATE (+) CALCIUM CARBONATE (+) PHENOBARBITAL (+) SODIUM [Concomitant]
     Dosage: UNSPECIFIED ANTIACID
     Route: 065
  10. PANADOL [Concomitant]
     Dosage: UNK UNK, UNKNOWN
     Route: 065
  11. ONDANSETRON [Concomitant]
     Indication: NAUSEA
     Dosage: UNK UNK, UNKNOWN
     Route: 065
  12. AMLODIPINE BESYLATE [Concomitant]
     Indication: BLOOD PRESSURE
     Dosage: 5 MG, QW
     Route: 065
  13. AMLODIPINE BESYLATE [Concomitant]
     Dosage: 10 MG, QW
     Dates: start: 20120514

REACTIONS (5)
  - Lower respiratory tract infection [Unknown]
  - Cardiac flutter [Unknown]
  - Salmonella sepsis [Unknown]
  - Liver function test abnormal [Unknown]
  - Post procedural infection [Recovered/Resolved]
